FAERS Safety Report 15582148 (Version 3)
Quarter: 2019Q2

REPORT INFORMATION
  Report Type: Report from Study
  Country: CA (occurrence: CA)
  Receive Date: 20181105
  Receipt Date: 20190613
  Transmission Date: 20190711
  Serious: No
  Sender: FDA-Public Use
  Company Number: CA-ROCHE-2208996

PATIENT
  Sex: Male

DRUGS (1)
  1. OCREVUS [Suspect]
     Active Substance: OCRELIZUMAB
     Indication: SECONDARY PROGRESSIVE MULTIPLE SCLEROSIS
     Dosage: 1.00 X 300 MG DAY 1, 15 THEN Q6M
     Route: 042
     Dates: start: 20171209

REACTIONS (6)
  - Skin infection [Unknown]
  - Progressive multiple sclerosis [Unknown]
  - Hypotension [Unknown]
  - Staphylococcal skin infection [Recovered/Resolved]
  - Influenza [Unknown]
  - Immunodeficiency [Unknown]
